FAERS Safety Report 13995197 (Version 1)
Quarter: 2017Q3

REPORT INFORMATION
  Report Type: Spontaneous
  Country: US (occurrence: None)
  Receive Date: 20170921
  Receipt Date: 20170921
  Transmission Date: 20171128
  Serious: Yes (Other)
  Sender: FDA-Public Use
  Company Number: None

PATIENT
  Age: 54 Year
  Sex: Male
  Weight: 85.73 kg

DRUGS (2)
  1. ATORVASTATIN 40MG [Suspect]
     Active Substance: ATORVASTATIN
     Indication: HYPERLIPIDAEMIA
     Route: 048
     Dates: start: 2012
  2. PRAVACHOL [Suspect]
     Active Substance: PRAVASTATIN SODIUM
     Route: 048
     Dates: start: 2011

REACTIONS (5)
  - Dizziness [None]
  - Headache [None]
  - Myalgia [None]
  - Palpitations [None]
  - Drug intolerance [None]

NARRATIVE: CASE EVENT DATE: 20161220
